FAERS Safety Report 21947651 (Version 3)
Quarter: 2023Q1

REPORT INFORMATION
  Report Type: Report from Study
  Country: US (occurrence: US)
  Receive Date: 20230203
  Receipt Date: 20230331
  Transmission Date: 20230417
  Serious: Yes (Other)
  Sender: FDA-Public Use
  Company Number: US-ABBVIE-4292322

PATIENT
  Age: 80 Year
  Sex: Female

DRUGS (1)
  1. HUMIRA [Suspect]
     Active Substance: ADALIMUMAB
     Indication: Rheumatoid arthritis
     Dosage: CITRATE FREE??THE END DATE OF EVENT DISLOCATED HIP SHOULD BE CAPTURED AS 2023.
     Route: 058
     Dates: start: 20081009, end: 20230125

REACTIONS (3)
  - Joint dislocation [Recovered/Resolved]
  - Fall [Recovering/Resolving]
  - Pain [Unknown]

NARRATIVE: CASE EVENT DATE: 20230111
